FAERS Safety Report 9104466 (Version 2)
Quarter: 2013Q3

REPORT INFORMATION
  Report Type: Spontaneous
  Country: US (occurrence: US)
  Receive Date: 20130219
  Receipt Date: 20130814
  Transmission Date: 20140515
  Serious: No
  Sender: FDA-Public Use
  Company Number: US-BIOGENIDEC-2013BI013177

PATIENT
  Age: 42 Year
  Sex: Female

DRUGS (3)
  1. TYSABRI [Suspect]
     Indication: MULTIPLE SCLEROSIS
     Route: 042
     Dates: start: 20090508, end: 20130204
  2. AVONEX [Concomitant]
     Indication: MULTIPLE SCLEROSIS
     Route: 030
  3. AVONEX [Concomitant]
     Indication: MULTIPLE SCLEROSIS
     Route: 030
     Dates: start: 20000101

REACTIONS (4)
  - Depression [Not Recovered/Not Resolved]
  - Memory impairment [Not Recovered/Not Resolved]
  - Fatigue [Not Recovered/Not Resolved]
  - Arthralgia [Not Recovered/Not Resolved]
